FAERS Safety Report 14372166 (Version 1)
Quarter: 2018Q1

REPORT INFORMATION
  Report Type: Report from Study
  Country: US (occurrence: US)
  Receive Date: 20180110
  Receipt Date: 20180110
  Transmission Date: 20180509
  Serious: Yes (Other)
  Sender: FDA-Public Use
  Company Number: US-AMGEN-USASL2018002172

PATIENT
  Age: 56 Year
  Sex: Female

DRUGS (1)
  1. REPATHA [Suspect]
     Active Substance: EVOLOCUMAB
     Indication: PRODUCT USED FOR UNKNOWN INDICATION
     Dosage: 140 MG, Q2WK
     Route: 065

REACTIONS (8)
  - Cardiac failure congestive [Unknown]
  - Injection site swelling [Unknown]
  - Body height decreased [Unknown]
  - Injection site pain [Unknown]
  - Fluid retention [Unknown]
  - Autonomic neuropathy [Unknown]
  - Chest pain [Unknown]
  - Weight fluctuation [Unknown]
